FAERS Safety Report 6550429-0 (Version None)
Quarter: 2010Q1

REPORT INFORMATION
  Report Type: 
  Country: None (occurrence: None)
  Receive Date: 20100122
  Receipt Date: 20100122
  Transmission Date: 20100710
  Serious: Yes (Disabling, Other)
  Sender: FDA-Public Use
  Company Number: None

PATIENT
  Age: 65 Year
  Sex: Female
  Weight: 79.3795 kg

DRUGS (1)
  1. PROPOFOL [Suspect]

REACTIONS (12)
  - ARTHROPATHY [None]
  - CHONDROPATHY [None]
  - COLLAGEN DISORDER [None]
  - CONTUSION [None]
  - GAIT DISTURBANCE [None]
  - INSOMNIA [None]
  - JOINT CREPITATION [None]
  - LIGAMENT DISORDER [None]
  - MEDICATION ERROR [None]
  - MOUTH INJURY [None]
  - MUSCLE SPASMS [None]
  - TREMOR [None]
